FAERS Safety Report 6899595-8 (Version None)
Quarter: 2010Q3

REPORT INFORMATION
  Report Type: 
  Country: None (occurrence: None)
  Receive Date: 20100729
  Receipt Date: 20100611
  Transmission Date: 20110219
  Serious: No
  Sender: FDA-Public Use
  Company Number: GW FILE C-10-056

PATIENT
  Sex: Male

DRUGS (1)
  1. ULTRA STRENGTH GREASELESS CREAM [Suspect]
     Indication: PAIN MANAGEMENT
     Dosage: EXTERNAL
     Route: 061

REACTIONS (2)
  - DRUG INEFFECTIVE [None]
  - PRODUCT QUALITY ISSUE [None]
